FAERS Safety Report 18483467 (Version 1)
Quarter: 2020Q4

REPORT INFORMATION
  Report Type: Spontaneous
  Country: DE (occurrence: DE)
  Receive Date: 20201109
  Receipt Date: 20201109
  Transmission Date: 20210114
  Serious: Yes (Other)
  Sender: FDA-Public Use
  Company Number: DE-GILEAD-2020-0503205

PATIENT
  Sex: Male
  Weight: 82 kg

DRUGS (3)
  1. REMDESIVIR. [Suspect]
     Active Substance: REMDESIVIR
     Indication: COVID-19
     Dosage: 200 MG, ONCE
     Route: 042
     Dates: start: 20201102, end: 20201102
  2. REMDESIVIR. [Suspect]
     Active Substance: REMDESIVIR
     Dosage: 100 MG
     Route: 042
     Dates: start: 20201103, end: 20201105
  3. PARACETAMOL [Concomitant]
     Active Substance: ACETAMINOPHEN
     Indication: PYREXIA
     Dosage: UNK
     Dates: start: 20201022, end: 20201103

REACTIONS (3)
  - Pneumonia [Recovering/Resolving]
  - Oxygen consumption increased [Recovering/Resolving]
  - Hepatic enzyme increased [Unknown]

NARRATIVE: CASE EVENT DATE: 20201105
